FAERS Safety Report 18955425 (Version 1)
Quarter: 2021Q1

REPORT INFORMATION
  Report Type: Spontaneous
  Country: US (occurrence: US)
  Receive Date: 20210301
  Receipt Date: 20210301
  Transmission Date: 20210420
  Serious: No
  Sender: FDA-Public Use
  Company Number: US-SAGENT PHARMACEUTICALS-2020SAG001076

PATIENT

DRUGS (7)
  1. KETOROLAC [Concomitant]
     Active Substance: KETOROLAC TROMETHAMINE
     Dosage: 30 MG
  2. PROPOFOL. [Suspect]
     Active Substance: PROPOFOL
     Indication: LIGHT ANAESTHESIA
     Dosage: 3?5 ML BOLUS EVERY 1?2 MINS
  3. MIDAZOLAM. [Concomitant]
     Active Substance: MIDAZOLAM
     Dosage: 2 MG
  4. FENTANYL. [Concomitant]
     Active Substance: FENTANYL
     Dosage: 100 MCG
  5. ONDANSETRON [Concomitant]
     Active Substance: ONDANSETRON
     Dosage: 4 MG
  6. GLYCOPYRROLATE                     /00196201/ [Concomitant]
     Active Substance: GLYCOPYRRONIUM
     Dosage: 0.2
  7. LIDOCAINE. [Concomitant]
     Active Substance: LIDOCAINE
     Dosage: 50 MG

REACTIONS (2)
  - Suspected product quality issue [Unknown]
  - Drug ineffective [Unknown]
